FAERS Safety Report 9747732 (Version 1)
Quarter: 2013Q4

REPORT INFORMATION
  Report Type: Spontaneous
  Country: US (occurrence: None)
  Receive Date: 20131211
  Receipt Date: 20131211
  Transmission Date: 20140711
  Serious: Yes (Hospitalization)
  Sender: FDA-Public Use
  Company Number: None

PATIENT
  Age: 65 Year
  Sex: Female
  Weight: 58.97 kg

DRUGS (1)
  1. VIIBRYD [Suspect]
     Indication: MAJOR DEPRESSION

REACTIONS (7)
  - Nightmare [None]
  - Screaming [None]
  - Night sweats [None]
  - Depression [None]
  - Stress [None]
  - Anxiety disorder [None]
  - Disease recurrence [None]
